FAERS Safety Report 19825764 (Version 1)
Quarter: 2021Q3

REPORT INFORMATION
  Report Type: Report from Study
  Country: IT (occurrence: IT)
  Receive Date: 20210914
  Receipt Date: 20210914
  Transmission Date: 20211014
  Serious: Yes (Hospitalization)
  Sender: FDA-Public Use
  Company Number: IT-TEVA-2021-IT-1951254

PATIENT
  Age: 74 Year
  Sex: Female

DRUGS (6)
  1. CARDIOASPIRIN 100 MG COMPRESSE GASTRORESISTENTI [Suspect]
     Active Substance: ASPIRIN
     Indication: ATRIAL FIBRILLATION
     Dosage: 1 DF
     Route: 048
     Dates: start: 20210720
  2. DILTIAZEM. [Suspect]
     Active Substance: DILTIAZEM
     Indication: ATRIAL FIBRILLATION
     Dosage: 1 DF
     Route: 048
     Dates: start: 20210624, end: 20210720
  3. LIXIANA 60 MG FILM?COATED TABLETS [Suspect]
     Active Substance: EDOXABAN TOSYLATE
     Indication: ATRIAL FIBRILLATION
     Dosage: 1 DF
     Route: 048
     Dates: start: 20210624, end: 20210720
  4. BENSERAZIDE [Concomitant]
     Active Substance: BENSERAZIDE
     Indication: PARKINSON^S DISEASE
     Dosage: 625 MG
     Route: 048
  5. LEVODOPA [Concomitant]
     Active Substance: LEVODOPA
  6. RASAGILINE MESILATE [Concomitant]
     Active Substance: RASAGILINE MESYLATE
     Indication: PARKINSON^S DISEASE
     Dosage: 1 MG
     Route: 048

REACTIONS (3)
  - Hypokinesia [Recovering/Resolving]
  - Bradyphrenia [Recovering/Resolving]
  - Headache [Recovering/Resolving]

NARRATIVE: CASE EVENT DATE: 20210720
